FAERS Safety Report 15383732 (Version 3)
Quarter: 2019Q1

REPORT INFORMATION
  Report Type: Spontaneous
  Country: US (occurrence: US)
  Receive Date: 20180913
  Receipt Date: 20190131
  Transmission Date: 20190417
  Serious: Yes (Hospitalization, Other)
  Sender: FDA-Public Use
  Company Number: US-PRINSTON PHARMACEUTICAL INC.-2018PRN01238

PATIENT
  Sex: Female
  Weight: 46.71 kg

DRUGS (5)
  1. VALSARTAN. [Suspect]
     Active Substance: VALSARTAN
     Dosage: 80 MG, 1X/DAY
     Route: 048
     Dates: end: 20180718
  2. CRESTOR [Concomitant]
     Active Substance: ROSUVASTATIN CALCIUM
  3. SYNTHROID [Concomitant]
     Active Substance: LEVOTHYROXINE SODIUM
  4. VALSARTAN. [Suspect]
     Active Substance: VALSARTAN
     Indication: HYPERTENSION
     Dosage: 80 MG, 1X/DAY
     Route: 048
     Dates: end: 20180718
  5. VALSARTAN. [Suspect]
     Active Substance: VALSARTAN
     Dosage: 80 MG, 1X/DAY
     Route: 048
     Dates: end: 20180718

REACTIONS (11)
  - Malaise [Recovering/Resolving]
  - Gait disturbance [Recovering/Resolving]
  - Neuropathy peripheral [Unknown]
  - Lung neoplasm malignant [Recovering/Resolving]
  - Colon cancer [Recovering/Resolving]
  - Contusion [Unknown]
  - Pain [Not Recovered/Not Resolved]
  - Dyspnoea [Recovering/Resolving]
  - Fall [Unknown]
  - Weight decreased [Not Recovered/Not Resolved]
  - Asthenia [Recovering/Resolving]
